FAERS Safety Report 5603333-6 (Version None)
Quarter: 2008Q1

REPORT INFORMATION
  Report Type: 
  Country: None (occurrence: None)
  Receive Date: 20080122
  Receipt Date: 20080102
  Transmission Date: 20080703
  Serious: Yes (Other)
  Sender: FDA-Public Use
  Company Number: 2007000903

PATIENT
  Age: 82 Year
  Sex: Male

DRUGS (4)
  1. MACUGEN [Suspect]
     Indication: MACULAR DEGENERATION
     Dosage: INTRA-VITREAL
  2. TRUSOPT [Concomitant]
  3. FLIXOTIDE [Concomitant]
  4. XALATAN [Concomitant]

REACTIONS (1)
  - BLINDNESS TRANSIENT [None]
